FAERS Safety Report 9234492 (Version 1)
Quarter: 2013Q2

REPORT INFORMATION
  Report Type: Spontaneous
  Country: US (occurrence: US)
  Receive Date: 20130416
  Receipt Date: 20130416
  Transmission Date: 20140414
  Serious: No
  Sender: FDA-Public Use
  Company Number: US-BANPHARM-20120244

PATIENT
  Age: 52 Year
  Sex: Male
  Weight: 81.63 kg

DRUGS (3)
  1. ALEVE LIQUID GELS 220 MG [Suspect]
     Indication: ARTHRITIS
     Dosage: 2 DF, QD,
     Route: 048
     Dates: start: 20121005, end: 20121005
  2. DIOVAN [Concomitant]
     Dates: start: 2010
  3. UNSPECIFIED MEDICATION FOR NERVE DAMAGE IN BACK [Concomitant]
     Dates: start: 20120930

REACTIONS (2)
  - Oral discomfort [Recovered/Resolved]
  - Lip pain [Recovered/Resolved]
